FAERS Safety Report 18474534 (Version 1)
Quarter: 2020Q4

REPORT INFORMATION
  Report Type: Spontaneous
  Country: US (occurrence: US)
  Receive Date: 20201106
  Receipt Date: 20201106
  Transmission Date: 20210114
  Serious: No
  Sender: FDA-Public Use
  Company Number: US-BAYER-2020-236171

PATIENT
  Sex: Female

DRUGS (1)
  1. MIRALAX [Suspect]
     Active Substance: POLYETHYLENE GLYCOL 3350
     Indication: FOREIGN BODY IN GASTROINTESTINAL TRACT
     Dosage: 0.25 DF

REACTIONS (2)
  - Product use in unapproved indication [Unknown]
  - Off label use [Unknown]
